FAERS Safety Report 20618857 (Version 1)
Quarter: 2022Q1

REPORT INFORMATION
  Report Type: Spontaneous
  Country: US (occurrence: US)
  Receive Date: 20220322
  Receipt Date: 20220322
  Transmission Date: 20220423
  Serious: No
  Sender: FDA-Public Use
  Company Number: US-Ipsen Biopharmaceuticals, Inc.-2022-07074

PATIENT
  Sex: Female

DRUGS (1)
  1. DYSPORT [Suspect]
     Active Substance: ABOBOTULINUMTOXINA
     Indication: Skin cosmetic procedure
     Dosage: DOSE NOT REPORTED
     Route: 065
     Dates: start: 20220204, end: 20220204

REACTIONS (2)
  - Nodule [Unknown]
  - Seborrhoea [Unknown]

NARRATIVE: CASE EVENT DATE: 20220101
